FAERS Safety Report 21695590 (Version 2)
Quarter: 2023Q1

REPORT INFORMATION
  Report Type: Other
  Country: CN (occurrence: CN)
  Receive Date: 20221207
  Receipt Date: 20230317
  Transmission Date: 20230418
  Serious: Yes (Other)
  Sender: FDA-Public Use
  Company Number: CN-PARATEK PHARMACEUTICALS, INC.-2022PTK00411

PATIENT
  Age: 75 Year
  Sex: Male

DRUGS (1)
  1. NUZYRA [Suspect]
     Active Substance: OMADACYCLINE
     Indication: Myelodysplastic syndrome
     Dosage: 0.1 G, 1X/DAY
     Route: 041
     Dates: start: 20221107, end: 20221109

REACTIONS (1)
  - Liver injury [Recovering/Resolving]
